FAERS Safety Report 4964042-X (Version None)
Quarter: 2006Q1

REPORT INFORMATION
  Report Type: 
  Country: None (occurrence: None)
  Receive Date: 20060330
  Receipt Date: 20060310
  Transmission Date: 20060701
  Serious: Yes (Other)
  Sender: FDA-Public Use
  Company Number: US200603004213

PATIENT
  Age: 64 Year
  Sex: Female

DRUGS (4)
  1. EVISTA [Suspect]
     Indication: OSTEOPOROSIS
  2. FORTEO [Suspect]
     Indication: OSTEOPOROSIS
  3. FORTEO PEN (FORTEO PEN) [Concomitant]
  4. FOSAMAX /ITA/ (ALENDRONATE SODIUM) [Concomitant]

REACTIONS (3)
  - BONE DENSITY DECREASED [None]
  - FEMUR FRACTURE [None]
  - INCORRECT DRUG ADMINISTRATION DURATION [None]
